FAERS Safety Report 5769574-2 (Version None)
Quarter: 2008Q2

REPORT INFORMATION
  Report Type: 
  Country: None (occurrence: None)
  Receive Date: 20080612
  Receipt Date: 20080401
  Transmission Date: 20081010
  Serious: No
  Sender: FDA-Public Use
  Company Number: US-ABBOTT-08P-163-0445182-00

PATIENT
  Sex: Male
  Weight: 73.548 kg

DRUGS (19)
  1. HUMIRA [Suspect]
     Indication: RHEUMATOID ARTHRITIS
     Route: 058
     Dates: start: 20071101
  2. LISINOPRIL [Concomitant]
     Indication: BLOOD PRESSURE
     Route: 048
     Dates: start: 20040101
  3. LISINOPRIL [Concomitant]
     Route: 048
     Dates: start: 20040101
  4. LISINOPRIL [Concomitant]
     Route: 048
     Dates: start: 20040101
  5. LISINOPRIL [Concomitant]
     Route: 048
     Dates: start: 20040101
  6. LISINOPRIL [Concomitant]
     Route: 048
     Dates: start: 20040101
  7. FOLIC ACID [Concomitant]
     Indication: MEDICAL DIET
     Route: 048
     Dates: start: 20070101
  8. METHOTREXATE [Concomitant]
     Indication: RHEUMATOID ARTHRITIS
     Route: 048
     Dates: start: 20070101
  9. ALPRAZOLAM [Concomitant]
     Indication: PAIN
     Route: 048
     Dates: start: 20080301
  10. ALPRAZOLAM [Concomitant]
     Indication: ANXIETY
  11. LOVASTATIN [Concomitant]
     Indication: BLOOD CHOLESTEROL
     Route: 048
     Dates: start: 20070101
  12. GLYCERYL TRINITRATE [Concomitant]
     Indication: CHEST PAIN
     Route: 060
     Dates: start: 20040101
  13. SULFASALAZINE [Concomitant]
     Indication: RHEUMATOID ARTHRITIS
     Route: 048
     Dates: start: 20071001
  14. GENERIC DARVOCET [Concomitant]
     Indication: PAIN
     Route: 048
     Dates: start: 20070101
  15. TRAMADOL HCL [Concomitant]
     Indication: PAIN
     Route: 048
     Dates: start: 20071101
  16. NAPROXEN [Concomitant]
     Indication: ARTHRITIS
     Route: 048
     Dates: start: 20050101
  17. FLUOXETINE [Concomitant]
     Indication: ANTIDEPRESSANT THERAPY
     Route: 048
     Dates: start: 20070101
  18. SALBUTAMOL SULFATE [Concomitant]
     Indication: ASTHMA
     Route: 055
  19. OMEPRAZOLE [Concomitant]
     Indication: ANTACID THERAPY
     Route: 048
     Dates: start: 20070101

REACTIONS (1)
  - ACCIDENTAL EXPOSURE [None]
